FAERS Safety Report 9633540 (Version 1)
Quarter: 2013Q4

REPORT INFORMATION
  Report Type: Spontaneous
  Country: PT (occurrence: PT)
  Receive Date: 20131021
  Receipt Date: 20131021
  Transmission Date: 20140711
  Serious: Yes (Other)
  Sender: FDA-Public Use
  Company Number: PHHY2013PT117645

PATIENT
  Age: 72 Year
  Sex: Female

DRUGS (4)
  1. VOLTAREN [Suspect]
     Indication: HEADACHE
     Dosage: 50 MG, PER DAY
     Route: 048
     Dates: start: 201207
  2. AMLODIPINE [Concomitant]
     Dosage: UNK UKN, UNK
  3. ENALAPRIL+HCTZ [Concomitant]
     Dosage: UNK UKN, UNK
  4. ATENOLOL [Concomitant]
     Dosage: 25 MG, PER DAY

REACTIONS (7)
  - Fatigue [Recovered/Resolved]
  - Dyspnoea [Recovered/Resolved]
  - Lip oedema [Recovered/Resolved]
  - Nasal oedema [Recovered/Resolved]
  - Eye oedema [Recovered/Resolved]
  - Nausea [Recovered/Resolved]
  - Vomiting [Recovered/Resolved]
